FAERS Safety Report 16093193 (Version 1)
Quarter: 2019Q1

REPORT INFORMATION
  Report Type: Spontaneous
  Country: US (occurrence: US)
  Receive Date: 20190320
  Receipt Date: 20190320
  Transmission Date: 20190418
  Serious: No
  Sender: FDA-Public Use
  Company Number: US-ASTRAZENECA-2019SE31513

PATIENT
  Sex: Female

DRUGS (1)
  1. SYMBICORT [Suspect]
     Active Substance: BUDESONIDE\FORMOTEROL FUMARATE DIHYDRATE
     Indication: ASTHMA
     Dosage: 80/4.5 MCG 2 PUFFS
     Route: 055
     Dates: start: 2018

REACTIONS (6)
  - Eyelid oedema [Recovering/Resolving]
  - Wrong technique in product usage process [Unknown]
  - Product dose omission [Unknown]
  - Throat irritation [Unknown]
  - Device issue [Unknown]
  - Dysphonia [Unknown]
